FAERS Safety Report 12536637 (Version 1)
Quarter: 2016Q3

REPORT INFORMATION
  Report Type: Spontaneous
  Country: US (occurrence: US)
  Receive Date: 20160707
  Receipt Date: 20160707
  Transmission Date: 20161109
  Serious: No
  Sender: FDA-Public Use
  Company Number: US-PFIZER INC-2016295248

PATIENT
  Age: 51 Year
  Sex: Female

DRUGS (1)
  1. IBRANCE [Suspect]
     Active Substance: PALBOCICLIB
     Dosage: TAKE 125 MG BY MOUTH DAILY FOR 21 DAYS, FOLLOWED BY 7 DAY REST PERIOD. REPEAT EVERY 28 DAYS
     Route: 048

REACTIONS (2)
  - Alopecia [Unknown]
  - Myalgia [Unknown]
